FAERS Safety Report 5245231-6 (Version None)
Quarter: 2007Q1

REPORT INFORMATION
  Report Type: 
  Country: None (occurrence: None)
  Receive Date: 20070223
  Receipt Date: 20070215
  Transmission Date: 20070707
  Serious: Yes (Hospitalization)
  Sender: FDA-Public Use
  Company Number: BR-ROCHE-483054

PATIENT
  Age: 34 Year
  Sex: Female

DRUGS (3)
  1. BONVIVA [Suspect]
     Indication: CALCIUM DEFICIENCY
     Dosage: THERAPY STOP DATE: 2007
     Route: 048
     Dates: start: 20061215
  2. CALCIUM [Concomitant]
     Indication: CALCIUM DEFICIENCY
     Route: 048
  3. LEVOTHYROXINE SODIUM [Concomitant]
     Indication: CALCIUM DEFICIENCY
     Route: 048

REACTIONS (2)
  - HYPERSENSITIVITY [None]
  - LARYNGEAL OEDEMA [None]
